FAERS Safety Report 5937331-X (Version None)
Quarter: 2008Q4

REPORT INFORMATION
  Report Type: 
  Country: None (occurrence: None)
  Receive Date: 20081031
  Receipt Date: 20081023
  Transmission Date: 20090506
  Serious: Yes (Hospitalization)
  Sender: FDA-Public Use
  Company Number: CH-AVENTIS-200815843EU

PATIENT
  Age: 65 Year
  Sex: Female

DRUGS (8)
  1. LASIX [Suspect]
     Route: 048
     Dates: end: 20080627
  2. ALDACTONE [Suspect]
     Route: 048
     Dates: end: 20080627
  3. CREON [Concomitant]
     Dosage: DOSE: UNK
     Route: 048
  4. BENERVA [Concomitant]
     Dosage: DOSE: UNK
     Route: 048
  5. BECOTAL                            /01451301/ [Concomitant]
     Dosage: DOSE: UNK
     Route: 048
  6. PANTOZOL                           /01263202/ [Concomitant]
     Dosage: DOSE: UNK
     Route: 048
  7. LEXOTANIL [Concomitant]
     Dosage: DOSE: UNK
     Route: 048
  8. ACTIVELLE [Concomitant]
     Dosage: DOSE: UNK
     Route: 048

REACTIONS (2)
  - ELECTROLYTE IMBALANCE [None]
  - RENAL FAILURE ACUTE [None]
